FAERS Safety Report 10004002 (Version 1)
Quarter: 2014Q1

REPORT INFORMATION
  Report Type: Spontaneous
  Country: US (occurrence: US)
  Receive Date: 20140312
  Receipt Date: 20140312
  Transmission Date: 20141002
  Serious: No
  Sender: FDA-Public Use
  Company Number: US-INCYTE CORPORATION-2013IN002926

PATIENT
  Age: 70 Year
  Sex: Male

DRUGS (6)
  1. JAKAFI [Suspect]
     Dosage: 20 MG, BID
     Route: 048
     Dates: start: 20121201
  2. AVADART [Concomitant]
  3. FLOMAX                             /00889901/ [Concomitant]
  4. HYDROXYUREA [Concomitant]
  5. NEXIUM                             /01479302/ [Concomitant]
  6. SIMVASTATIN [Concomitant]

REACTIONS (1)
  - Stomatitis [Not Recovered/Not Resolved]
